FAERS Safety Report 8785085 (Version 1)
Quarter: 2012Q4

REPORT INFORMATION
  Report Type: Spontaneous
  Country: MX (occurrence: None)
  Receive Date: 20120831
  Receipt Date: 20120831
  Transmission Date: 20130627
  Serious: Yes (Death)
  Sender: FDA-Public Use
  Company Number: ENTC2012-0388

PATIENT
  Age: 97 Year
  Sex: Female

DRUGS (1)
  1. STALEVO (LEVODOPA, CARBIDOPA, ENTACAPONE) [Suspect]
     Indication: PARKINSON^S DISEASE
     Dosage: 159/37,5/200 mg, 2 tablets daily

REACTIONS (2)
  - Respiratory arrest [None]
  - Blood pressure decreased [None]
